FAERS Safety Report 20479539 (Version 2)
Quarter: 2022Q1

REPORT INFORMATION
  Report Type: Spontaneous
  Country: NL (occurrence: NL)
  Receive Date: 20220216
  Receipt Date: 20220309
  Transmission Date: 20220423
  Serious: Yes (Death, Life-Threatening, Hospitalization)
  Sender: FDA-Public Use
  Company Number: None

PATIENT
  Age: 76 Year
  Sex: Female
  Weight: 65 kg

DRUGS (2)
  1. ROSUVASTATIN [Suspect]
     Active Substance: ROSUVASTATIN
     Indication: Dizziness
     Dosage: 1 DOSAGE FORMS DAILY; ,ROSUVASTATINE TABLET  5MG / BRAND NAME NOT SPECIFIED,THERAPY END DATE: ASKU
     Dates: start: 202111
  2. CLOPIDOGREL [Suspect]
     Active Substance: CLOPIDOGREL BISULFATE
     Indication: Intermittent claudication
     Dosage: 1 DOSAGE FORMS DAILY; CLOPIDOGREL TABLET   75MG / BRAND NAME NOT SPECIFIED,THERAPY END DATE: ASKU
     Dates: start: 2020

REACTIONS (1)
  - Cerebral haemorrhage [Fatal]

NARRATIVE: CASE EVENT DATE: 20211228
